FAERS Safety Report 9210501 (Version 2)
Quarter: 2013Q4

REPORT INFORMATION
  Report Type: Spontaneous
  Country: US (occurrence: US)
  Receive Date: 20130404
  Receipt Date: 20131105
  Transmission Date: 20140711
  Serious: Yes (Other)
  Sender: FDA-Public Use
  Company Number: US-BAYER-2013-041981

PATIENT
  Age: 19 Year
  Sex: Female

DRUGS (5)
  1. YASMIN [Suspect]
     Dosage: UNK
     Dates: start: 200801
  2. YAZ [Suspect]
     Dosage: UNK
     Dates: start: 200801
  3. PRILOSEC [Concomitant]
     Indication: GASTROOESOPHAGEAL REFLUX DISEASE
     Dosage: 40 MG, UNK
     Route: 048
  4. REGLAN [Concomitant]
     Dosage: 5 MG, UNK
     Route: 048
  5. ZYRTEC [Concomitant]
     Route: 048

REACTIONS (8)
  - Cholecystectomy [None]
  - Pain [None]
  - Injury [None]
  - Anxiety [None]
  - Anhedonia [None]
  - Scar [None]
  - Gastrointestinal disorder [None]
  - Cholecystitis chronic [None]
